FAERS Safety Report 13918854 (Version 1)
Quarter: 2017Q3

REPORT INFORMATION
  Report Type: Spontaneous
  Country: US (occurrence: None)
  Receive Date: 20170828
  Receipt Date: 20170828
  Transmission Date: 20171127
  Serious: Yes (Death, Hospitalization)
  Sender: FDA-Public Use
  Company Number: None

PATIENT
  Age: 4 Year
  Sex: Female
  Weight: 29 kg

DRUGS (4)
  1. MERCAPTOPURINE. [Suspect]
     Active Substance: MERCAPTOPURINE
     Dates: end: 20161022
  2. METHOTREXATE. [Suspect]
     Active Substance: METHOTREXATE
     Dates: end: 20161023
  3. VINCRISTINE SULFATE. [Suspect]
     Active Substance: VINCRISTINE SULFATE
     Dates: end: 20161011
  4. DEXAMETHASONE. [Suspect]
     Active Substance: DEXAMETHASONE
     Dates: end: 20161015

REACTIONS (26)
  - Upper respiratory tract infection [None]
  - Hepatomegaly [None]
  - Hypotension [None]
  - Organ failure [None]
  - Vomiting [None]
  - Hyperbilirubinaemia [None]
  - Coagulopathy [None]
  - Sinus disorder [None]
  - Disseminated intravascular coagulation [None]
  - Mydriasis [None]
  - Pyrexia [None]
  - Aggression [None]
  - Acute hepatic failure [None]
  - Hypertension [None]
  - Lethargy [None]
  - Confusional state [None]
  - Hyperammonaemia [None]
  - Aspartate aminotransferase increased [None]
  - Brain oedema [None]
  - Brain herniation [None]
  - Otitis media acute [None]
  - Alanine aminotransferase increased [None]
  - Mental status changes [None]
  - Hepatic steatosis [None]
  - Serum ferritin increased [None]
  - Pancytopenia [None]

NARRATIVE: CASE EVENT DATE: 20161024
